FAERS Safety Report 4677226-5 (Version None)
Quarter: 2005Q2

REPORT INFORMATION
  Report Type: 
  Country: None (occurrence: None)
  Receive Date: 20050531
  Receipt Date: 20030106
  Transmission Date: 20051028
  Serious: Yes (Death, Hospitalization)
  Sender: FDA-Public Use
  Company Number: JP-SOLVAY-00303000042

PATIENT
  Age: 8441 Day
  Sex: Male
  Weight: 42.5 kg

DRUGS (4)
  1. CLARITHROMYCIN [Concomitant]
     Indication: BRONCHITIS CHRONIC
     Dosage: DAILY DOSE: 400 MG. FREQUENCY: UNKNOWN
     Route: 048
     Dates: start: 20001114, end: 20030124
  2. CREON [Suspect]
     Indication: CYSTIC FIBROSIS PANCREATIC
     Dosage: DAILY DOSE: 6 G. FREQUENCY: UNKNOWN
     Route: 048
     Dates: start: 20001114, end: 20030105
  3. PANVITAN [Concomitant]
     Indication: HYPOVITAMINOSIS
     Dosage: DAILY DOSE: 3 G. FREQUENCY: UNKNOWN
     Route: 048
     Dates: start: 20001114, end: 20030124
  4. KAYWAN [Concomitant]
     Indication: HYPOVITAMINOSIS
     Dosage: DAILY DOSE: 5 MG. FREQUENCY:UNKNOWN
     Route: 048
     Dates: start: 20011114, end: 20030124

REACTIONS (24)
  - ANAEMIA [None]
  - BLOOD PRESSURE DECREASED [None]
  - CARDIAC ARREST [None]
  - CHEST PAIN [None]
  - CONDITION AGGRAVATED [None]
  - COUGH [None]
  - DISSEMINATED INTRAVASCULAR COAGULATION [None]
  - DYSPNOEA [None]
  - HAEMODIALYSIS [None]
  - HAEMOLYSIS [None]
  - HYPERBILIRUBINAEMIA [None]
  - HYPERCAPNIA [None]
  - JAUNDICE ACHOLURIC [None]
  - MULTI-ORGAN FAILURE [None]
  - PCO2 INCREASED [None]
  - PLATELET COUNT DECREASED [None]
  - PNEUMOTHORAX [None]
  - PSEUDOMONAS INFECTION [None]
  - PULMONARY HYPERTENSION [None]
  - RENAL FAILURE [None]
  - RESPIRATORY FAILURE [None]
  - RIGHT VENTRICULAR FAILURE [None]
  - SHOCK [None]
  - STAPHYLOCOCCAL INFECTION [None]
